FAERS Safety Report 6762331-X (Version None)
Quarter: 2010Q2

REPORT INFORMATION
  Report Type: 
  Country: None (occurrence: None)
  Receive Date: 20100609
  Receipt Date: 20100602
  Transmission Date: 20101027
  Serious: Yes (Hospitalization)
  Sender: FDA-Public Use
  Company Number: PHHO2010DE08445

PATIENT
  Sex: Male
  Weight: 78 kg

DRUGS (1)
  1. TASIGNA [Suspect]
     Indication: HYPEREOSINOPHILIC SYNDROME
     Dosage: 400 MG, BID
     Route: 048
     Dates: end: 20100324

REACTIONS (3)
  - ANGIOPLASTY [None]
  - ARTERIAL STENT INSERTION [None]
  - PERIPHERAL REVASCULARISATION [None]
